FAERS Safety Report 8820681 (Version 2)
Quarter: 2012Q4

REPORT INFORMATION
  Report Type: 
  Country: DE (occurrence: BR)
  Receive Date: 20121002
  Receipt Date: 20121026
  Transmission Date: 20130627
  Serious: Yes (Other)
  Sender: FDA-Public Use
  Company Number: BR-FRI-1000039089

PATIENT
  Sex: Male
  Weight: 58 kg

DRUGS (6)
  1. ROFLUMILAST [Suspect]
     Indication: CHRONIC OBSTRUCTIVE PULMONARY DISEASE
     Dosage: 500 mcg
     Route: 048
     Dates: start: 201208, end: 201209
  2. CAPTOPRIL [Concomitant]
     Indication: HYPERTENSION
     Dosage: 2 DF
     Route: 048
     Dates: start: 2007
  3. PROPANOLOL [Concomitant]
     Indication: HYPERTENSION
     Dosage: 3 DF
     Route: 048
     Dates: start: 2007
  4. HYDROCHLOROTHIAZIDE [Concomitant]
     Indication: HYPERTENSION
     Dosage: 1 DF
     Route: 048
     Dates: start: 2007
  5. BEROTEC [Concomitant]
     Indication: BRONCHOSPASM
     Dosage: 2 Gtt
     Route: 048
     Dates: start: 2009
  6. ATROVENT [Concomitant]
     Indication: BRONCHOSPASM
     Dosage: 15 Gtt
     Route: 048
     Dates: start: 2009

REACTIONS (15)
  - Hyperhidrosis [Recovered/Resolved]
  - Weight decreased [Not Recovered/Not Resolved]
  - Diarrhoea [Recovered/Resolved]
  - Insomnia [Recovered/Resolved]
  - Anxiety [Recovered/Resolved]
  - Tremor [Recovered/Resolved]
  - Dizziness [Recovered/Resolved]
  - Nausea [Recovered/Resolved]
  - Myalgia [Recovered/Resolved]
  - Asthenia [Recovered/Resolved]
  - Malaise [Recovered/Resolved]
  - Fatigue [Recovered/Resolved]
  - Back pain [Recovered/Resolved]
  - Palpitations [Recovered/Resolved]
  - Decreased appetite [Recovered/Resolved]
